FAERS Safety Report 13067881 (Version 1)
Quarter: 2016Q4

REPORT INFORMATION
  Report Type: Spontaneous
  Country: US (occurrence: US)
  Receive Date: 20161227
  Receipt Date: 20161227
  Transmission Date: 20170207
  Serious: No
  Sender: FDA-Public Use
  Company Number: None

PATIENT
  Sex: Female

DRUGS (1)
  1. IBRANCE [Suspect]
     Active Substance: PALBOCICLIB
     Indication: BREAST CANCER FEMALE
     Dosage: 75MG DAILY FOR 21 DAYS FOLLOWED BY 7 DAYS OFF  BY MOUTH
     Route: 048
     Dates: start: 20160926

REACTIONS (2)
  - Sinusitis [None]
  - Haemorrhage [None]
